FAERS Safety Report 4877625-2 (Version None)
Quarter: 2006Q1

REPORT INFORMATION
  Report Type: 
  Country: None (occurrence: None)
  Receive Date: 20060111
  Receipt Date: 20051230
  Transmission Date: 20060701
  Serious: Yes (Other)
  Sender: FDA-Public Use
  Company Number: GBWYE270330DEC05

PATIENT
  Sex: Female

DRUGS (5)
  1. ENBREL [Suspect]
     Indication: DRUG USE FOR UNKNOWN INDICATION
     Route: 058
     Dates: start: 20050415, end: 20051125
  2. HUMALOG [Concomitant]
     Dosage: 20IU TWO TIMES A DAY
     Route: 058
  3. NABUMETONE [Concomitant]
     Route: 048
  4. SIMVASTATIN [Concomitant]
     Dosage: 40MG NIGHTLY
     Route: 048
  5. METHOTREXATE [Concomitant]
     Route: 065

REACTIONS (2)
  - HEART RATE INCREASED [None]
  - PALPITATIONS [None]
